FAERS Safety Report 5393786-3 (Version None)
Quarter: 2007Q3

REPORT INFORMATION
  Report Type: 
  Country: None (occurrence: None)
  Receive Date: 20070719
  Receipt Date: 20070719
  Transmission Date: 20080115
  Serious: Yes (Hospitalization)
  Sender: FDA-Public Use
  Company Number: None

PATIENT
  Age: 78 Year
  Sex: Female
  Weight: 49.8957 kg

DRUGS (1)
  1. METHOTREXATE [Suspect]
     Indication: RHEUMATOID ARTHRITIS
     Dosage: 2.5 MG  7.5/WEEK  PO
     Route: 048
     Dates: start: 20000101, end: 20050901

REACTIONS (7)
  - ANHEDONIA [None]
  - COGNITIVE DISORDER [None]
  - GAIT DISTURBANCE [None]
  - HUMERUS FRACTURE [None]
  - MEMORY IMPAIRMENT [None]
  - RESPIRATORY DISORDER [None]
  - TRANSIENT ISCHAEMIC ATTACK [None]
